FAERS Safety Report 4278071-5 (Version None)
Quarter: 2004Q1

REPORT INFORMATION
  Report Type: 
  Country: None (occurrence: None)
  Receive Date: 20040121
  Receipt Date: 19981219
  Transmission Date: 20041129
  Serious: No
  Sender: FDA-Public Use
  Company Number: 7174

PATIENT
  Sex: Female

DRUGS (1)
  1. METHOTREXATE [Suspect]
     Indication: BREAST CANCER

REACTIONS (4)
  - ATAXIA [None]
  - FALL [None]
  - INJURY [None]
  - NERVOUS SYSTEM DISORDER [None]
